APPROVED DRUG PRODUCT: PROKETAZINE
Active Ingredient: CARPHENAZINE MALEATE
Strength: 50MG
Dosage Form/Route: TABLET;ORAL
Application: N012768 | Product #004
Applicant: WYETH AYERST LABORATORIES
Approved: Approved Prior to Jan 1, 1982 | RLD: No | RS: No | Type: DISCN